FAERS Safety Report 11223281 (Version 1)
Quarter: 2015Q2

REPORT INFORMATION
  Report Type: Spontaneous
  Country: GB (occurrence: GB)
  Receive Date: 20150626
  Receipt Date: 20150626
  Transmission Date: 20150821
  Serious: Yes (Hospitalization)
  Sender: FDA-Public Use
  Company Number: GB-SA-2015SA091528

PATIENT
  Age: 57 Year
  Sex: Male

DRUGS (7)
  1. BISOPROLOL [Concomitant]
     Active Substance: BISOPROLOL
     Dosage: EACH MORNING
  2. INDAPAMIDE. [Suspect]
     Active Substance: INDAPAMIDE
     Dosage: EACH MORNING
     Route: 065
  3. RAMIPRIL. [Concomitant]
     Active Substance: RAMIPRIL
     Dosage: EACH MORNING
  4. LANSOPRAZOLE. [Suspect]
     Active Substance: LANSOPRAZOLE
     Dosage: EACH MORNING
     Route: 065
  5. ATORVASTATIN [Concomitant]
     Active Substance: ATORVASTATIN
     Dosage: AT NIGHT
  6. WARFARIN [Concomitant]
     Active Substance: WARFARIN
     Dosage: AS PER INR (6MG EACH DAY EXCEPT 7MG ON WEDNESDAYS)
  7. IMIQUIMOD. [Concomitant]
     Active Substance: IMIQUIMOD
     Indication: HYPERKERATOSIS
     Dosage: AT NIGHT

REACTIONS (4)
  - Loss of consciousness [Recovering/Resolving]
  - Hypotension [Unknown]
  - Syncope [Recovered/Resolved]
  - Hyponatraemia [Recovering/Resolving]
